FAERS Safety Report 23544195 (Version 2)
Quarter: 2024Q1

REPORT INFORMATION
  Report Type: Spontaneous
  Country: US (occurrence: US)
  Receive Date: 20240220
  Receipt Date: 20240320
  Transmission Date: 20240409
  Serious: No
  Sender: FDA-Public Use
  Company Number: US-SA-SAC20240219000024

PATIENT
  Age: 24 Year
  Sex: Female

DRUGS (1)
  1. DUPIXENT [Suspect]
     Active Substance: DUPILUMAB
     Indication: Nasal polyps
     Dosage: 300 MG, QOW
     Route: 058
     Dates: start: 20231117

REACTIONS (7)
  - Paranasal sinus discomfort [Unknown]
  - Headache [Unknown]
  - Condition aggravated [Unknown]
  - Rhinorrhoea [Unknown]
  - Asthenia [Unknown]
  - Nasopharyngitis [Unknown]
  - Therapeutic response decreased [Unknown]
